FAERS Safety Report 7437252-X (Version None)
Quarter: 2011Q2

REPORT INFORMATION
  Report Type: 
  Country: None (occurrence: None)
  Receive Date: 20110426
  Receipt Date: 20110414
  Transmission Date: 20111010
  Serious: Yes (Other)
  Sender: FDA-Public Use
  Company Number: FR-BRISTOL-MYERS SQUIBB COMPANY-15689334

PATIENT
  Age: 55 Year
  Sex: Male

DRUGS (5)
  1. REYATAZ [Suspect]
     Indication: HIV INFECTION
     Dates: start: 20090101, end: 20100701
  2. RALTEGRAVIR [Suspect]
     Indication: HIV INFECTION
     Dates: start: 20100701
  3. NORVIR [Suspect]
     Indication: HIV INFECTION
     Dates: start: 20090101, end: 20100701
  4. TRUVADA [Suspect]
     Indication: HIV INFECTION
     Dosage: 1 DF = 300/200
     Dates: start: 20090101, end: 20100701
  5. FENOFIBRATE [Concomitant]
     Indication: DYSLIPIDAEMIA

REACTIONS (2)
  - FANCONI SYNDROME [None]
  - LIPOMA [None]
